FAERS Safety Report 18728839 (Version 1)
Quarter: 2021Q1

REPORT INFORMATION
  Report Type: Report from Study
  Country: ES (occurrence: ES)
  Receive Date: 20210112
  Receipt Date: 20210112
  Transmission Date: 20210419
  Serious: Yes (Death, Other)
  Sender: FDA-Public Use
  Company Number: ES-SUN PHARMACEUTICAL INDUSTRIES LTD-2020R1-274781

PATIENT
  Age: 85 Year
  Sex: Female

DRUGS (2)
  1. CIPROFLOXACINO [Suspect]
     Active Substance: CIPROFLOXACIN HYDROCHLORIDE
     Indication: ANTIBIOTIC THERAPY
     Dosage: 750 MILLIGRAM, BID
     Route: 048
  2. CEFEPIME [Suspect]
     Active Substance: CEFEPIME HYDROCHLORIDE
     Indication: ANTIBIOTIC THERAPY
     Dosage: 2 G/H
     Route: 042

REACTIONS (3)
  - Bacteraemia [Fatal]
  - Mediastinitis [Fatal]
  - Multiple organ dysfunction syndrome [Fatal]
